FAERS Safety Report 6240639-4 (Version None)
Quarter: 2009Q2

REPORT INFORMATION
  Report Type: 
  Country: None (occurrence: None)
  Receive Date: 20090623
  Receipt Date: 20081120
  Transmission Date: 20091009
  Serious: No
  Sender: FDA-Public Use
  Company Number: US-ASTRAZENECA-2008UW26096

PATIENT
  Sex: Female

DRUGS (2)
  1. PULMICORT FLEXHALER [Suspect]
     Indication: ASTHMA
     Dosage: 180 UG 120 DOSES, ONE PUFF TWO TIMES A DAY FOR A WEEK
     Route: 055
  2. CIPRO [Concomitant]

REACTIONS (2)
  - DYSGEUSIA [None]
  - URINARY TRACT INFECTION [None]
